FAERS Safety Report 5400781-4 (Version None)
Quarter: 2007Q3

REPORT INFORMATION
  Report Type: 
  Country: None (occurrence: None)
  Receive Date: 20070726
  Receipt Date: 20070710
  Transmission Date: 20080115
  Serious: Yes (Other)
  Sender: FDA-Public Use
  Company Number: 2007BI009635

PATIENT
  Age: 42 Year
  Sex: Female

DRUGS (7)
  1. NATALIZUMAB [Suspect]
     Indication: MULTIPLE SCLEROSIS
     Dosage: 300 MG; QM; IV
     Route: 042
     Dates: start: 20070330, end: 20070430
  2. AVONEX LYOPHILIZED [Concomitant]
  3. TYLENOL (CAPLET) [Concomitant]
  4. IBUPROFEN [Concomitant]
  5. WELLBUTRIN [Concomitant]
  6. LEXAPRO [Concomitant]
  7. IVMP [Concomitant]

REACTIONS (2)
  - ANGIOEDEMA [None]
  - DRUG HYPERSENSITIVITY [None]
